FAERS Safety Report 13745948 (Version 1)
Quarter: 2017Q3

REPORT INFORMATION
  Report Type: Spontaneous
  Country: JP (occurrence: JP)
  Receive Date: 20170712
  Receipt Date: 20170712
  Transmission Date: 20171127
  Serious: Yes (Other)
  Sender: FDA-Public Use
  Company Number: JP-GLAXOSMITHKLINE-JP2017JPN105781

PATIENT
  Sex: Female

DRUGS (3)
  1. DEPROMEL [Concomitant]
     Active Substance: FLUVOXAMINE
     Indication: PANIC DISORDER
     Dosage: UNK
  2. FLUTIDE [Suspect]
     Active Substance: FLUTICASONE PROPIONATE
     Indication: NASOPHARYNGITIS
     Dosage: 800 ?G, UNK
     Route: 055
     Dates: start: 201706
  3. PAXIL [Suspect]
     Active Substance: PAROXETINE HYDROCHLORIDE
     Indication: PANIC DISORDER
     Dosage: UNK DF, UNK
     Route: 048
     Dates: start: 2007, end: 2007

REACTIONS (4)
  - Product use in unapproved indication [Unknown]
  - Burning sensation [Recovered/Resolved]
  - Myocardial infarction [Recovered/Resolved]
  - Euphoric mood [Recovered/Resolved]

NARRATIVE: CASE EVENT DATE: 2007
